FAERS Safety Report 7816653-1 (Version None)
Quarter: 2011Q4

REPORT INFORMATION
  Report Type: 
  Country: None (occurrence: None)
  Receive Date: 20111017
  Receipt Date: 20111004
  Transmission Date: 20120403
  Serious: Yes (Other)
  Sender: FDA-Public Use
  Company Number: DE-US-EMD SERONO, INC.-7088132

PATIENT
  Age: 40 Year
  Sex: Female

DRUGS (9)
  1. HYDROCHLOROTHIAZIDE [Concomitant]
     Route: 048
  2. CORTISONE ACETATE [Suspect]
     Indication: MUSCULOSKELETAL PAIN
  3. OMEGWAZOL [Concomitant]
     Route: 048
  4. SIMVASTATIN [Concomitant]
     Route: 048
  5. REBIF [Suspect]
     Indication: MULTIPLE SCLEROSIS
     Route: 058
     Dates: start: 19990101
  6. BACLOFEN [Concomitant]
  7. NEBIVOLOL HCL [Concomitant]
     Route: 048
  8. TRAMADOL HCL [Concomitant]
  9. ASPIRIN [Concomitant]
     Route: 048

REACTIONS (1)
  - HERPES SIMPLEX OPHTHALMIC [None]
